APPROVED DRUG PRODUCT: RANITIDINE HYDROCHLORIDE
Active Ingredient: RANITIDINE HYDROCHLORIDE
Strength: EQ 25MG BASE/ML
Dosage Form/Route: INJECTABLE;INJECTION
Application: A074764 | Product #001
Applicant: BEDFORD LABORATORIES DIV BEN VENUE LABORATORIES INC
Approved: Nov 19, 2004 | RLD: No | RS: No | Type: DISCN